FAERS Safety Report 15667674 (Version 2)
Quarter: 2019Q1

REPORT INFORMATION
  Report Type: Spontaneous
  Country: FR (occurrence: FR)
  Receive Date: 20181128
  Receipt Date: 20190125
  Transmission Date: 20190417
  Serious: Yes (Death, Hospitalization)
  Sender: FDA-Public Use
  Company Number: FR-MYLANLABS-2018M1087967

PATIENT
  Age: 59 Year
  Sex: Male

DRUGS (6)
  1. DEXAMETHASONE. [Concomitant]
     Active Substance: DEXAMETHASONE
     Indication: MANTLE CELL LYMPHOMA STAGE III
     Dosage: 4 CYCLES
     Route: 065
  2. FLUCONAZOLE. [Concomitant]
     Active Substance: FLUCONAZOLE
     Indication: ANTIFUNGAL PROPHYLAXIS
     Dosage: STARTED ON DAY 7 PRIOR TO AUTOLOGOUS STEM CELL TRANSPLANT
     Route: 065
  3. VALACICLOVIR [Concomitant]
     Active Substance: VALACYCLOVIR HYDROCHLORIDE
     Indication: ANTIVIRAL PROPHYLAXIS
     Dosage: STARTED ON DAY 7 PRIOR TO AUTOLOGOUS STEM CELL TRANSPLANT
     Route: 065
  4. CYTARABINE. [Concomitant]
     Active Substance: CYTARABINE
     Indication: DIFFUSE LARGE B-CELL LYMPHOMA STAGE IV
     Dosage: 4 CYCLES
     Route: 065
  5. OXALIPLATIN. [Suspect]
     Active Substance: OXALIPLATIN
     Indication: MANTLE CELL LYMPHOMA STAGE III
     Dosage: 4 CYCLES
     Route: 065
  6. RITUXIMAB. [Concomitant]
     Active Substance: RITUXIMAB
     Indication: MANTLE CELL LYMPHOMA STAGE III
     Dosage: 4 CYCLES
     Route: 065

REACTIONS (14)
  - Acute respiratory distress syndrome [Fatal]
  - Arrhythmia [Fatal]
  - Thrombocytopenia [Fatal]
  - Multiple organ dysfunction syndrome [Fatal]
  - Coagulopathy [Fatal]
  - Hepatic failure [Fatal]
  - Lactic acidosis [Fatal]
  - Venoocclusive liver disease [Fatal]
  - Acute kidney injury [Fatal]
  - Intestinal ischaemia [Fatal]
  - Haemodynamic instability [Fatal]
  - Ischaemic hepatitis [Fatal]
  - Renal ischaemia [Fatal]
  - Hepatitis fulminant [Fatal]
